FAERS Safety Report 20194921 (Version 1)
Quarter: 2021Q4

REPORT INFORMATION
  Report Type: Spontaneous
  Country: US (occurrence: None)
  Receive Date: 20211216
  Receipt Date: 20211216
  Transmission Date: 20220303
  Serious: Yes (Other)
  Sender: FDA-Public Use
  Company Number: None

PATIENT
  Age: 10 Year
  Sex: Male
  Weight: 37.8 kg

DRUGS (2)
  1. GAMUNEX [Suspect]
     Active Substance: HUMAN IMMUNOGLOBULIN G
     Indication: Anti-NMDA antibody
     Dosage: OTHER FREQUENCY : X 2 DAYS;?
     Route: 041
     Dates: start: 20211215
  2. GAMUNEX [Suspect]
     Active Substance: HUMAN IMMUNOGLOBULIN G
     Indication: Encephalitis autoimmune

REACTIONS (4)
  - Cough [None]
  - Wheezing [None]
  - Tachypnoea [None]
  - Flushing [None]

NARRATIVE: CASE EVENT DATE: 20211215
